FAERS Safety Report 16444898 (Version 1)
Quarter: 2019Q2

REPORT INFORMATION
  Report Type: Spontaneous
  Country: US (occurrence: US)
  Receive Date: 20190618
  Receipt Date: 20190618
  Transmission Date: 20190711
  Serious: No
  Sender: FDA-Public Use
  Company Number: US-TEVA-2019-US-1056028

PATIENT
  Sex: Female

DRUGS (1)
  1. COPAXONE [Suspect]
     Active Substance: GLATIRAMER ACETATE
     Route: 065

REACTIONS (7)
  - Paraesthesia [Unknown]
  - Pain [Unknown]
  - Limb discomfort [Unknown]
  - Musculoskeletal chest pain [Unknown]
  - Burning sensation [Unknown]
  - Hypoaesthesia [Unknown]
  - Back pain [Unknown]
